FAERS Safety Report 8511679-7 (Version None)
Quarter: 2012Q3

REPORT INFORMATION
  Report Type: 
  Country: None (occurrence: None)
  Receive Date: 20120710
  Receipt Date: 20120710
  Transmission Date: 20120928
  Serious: Yes (Hospitalization)
  Sender: FDA-Public Use
  Company Number: None

PATIENT
  Sex: Female
  Weight: 85 kg

DRUGS (3)
  1. PACLITAXEL [Suspect]
     Dosage: 262 MG
  2. IFOSFAMIDE [Suspect]
     Dosage: 9.3 G
  3. NEULASTA [Suspect]
     Dosage: 6 MG

REACTIONS (1)
  - ANAEMIA [None]
